FAERS Safety Report 9284846 (Version 2)
Quarter: 2013Q3

REPORT INFORMATION
  Report Type: Spontaneous
  Country: US (occurrence: US)
  Receive Date: 20130513
  Receipt Date: 20130802
  Transmission Date: 20140515
  Serious: No
  Sender: FDA-Public Use
  Company Number: US-009507513-1305USA002063

PATIENT
  Age: 23 Year
  Sex: Male
  Weight: 72.11 kg

DRUGS (4)
  1. VICTRELIS [Suspect]
     Dosage: 4 DF, EVERY 7 TO 9 HOURS
     Route: 048
  2. RIBAPAK [Suspect]
     Dosage: 1000/DAY
     Route: 048
  3. PEGASYS [Suspect]
     Dosage: 180MCG/M
     Route: 058
  4. MILK THISTLE [Concomitant]

REACTIONS (2)
  - Neutropenia [Unknown]
  - Irritability [Unknown]
